FAERS Safety Report 22058053 (Version 1)
Quarter: 2023Q1

REPORT INFORMATION
  Report Type: Spontaneous
  Country: US (occurrence: US)
  Receive Date: 20230303
  Receipt Date: 20230303
  Transmission Date: 20230418
  Serious: Yes (Other)
  Sender: FDA-Public Use
  Company Number: US-NATCOUSA-2023-NATCOUSA-000136

PATIENT
  Age: 61 Year
  Sex: Female

DRUGS (8)
  1. BUDESONIDE [Suspect]
     Active Substance: BUDESONIDE
     Indication: Colitis microscopic
     Dosage: SHORT-TERM INDUCTION USE OF BUDESONIDE
  2. INFLIXIMAB [Concomitant]
     Active Substance: INFLIXIMAB
     Indication: Colitis microscopic
  3. TACROLIMUS [Concomitant]
     Active Substance: TACROLIMUS
     Indication: Colitis microscopic
  4. VEDOLIZUMAB [Concomitant]
     Active Substance: VEDOLIZUMAB
     Indication: Colitis microscopic
  5. TOFACITINIB [Concomitant]
     Active Substance: TOFACITINIB
     Indication: Colitis microscopic
  6. OZANIMOD [Concomitant]
     Active Substance: OZANIMOD
     Indication: Colitis microscopic
  7. COLESEVELAM [Suspect]
     Active Substance: COLESEVELAM
     Indication: Colitis microscopic
  8. BUDESONIDE [Suspect]
     Active Substance: BUDESONIDE
     Indication: Colitis microscopic

REACTIONS (6)
  - Colitis microscopic [Recovered/Resolved]
  - Therapy partial responder [Recovered/Resolved]
  - Diarrhoea [Recovered/Resolved]
  - Disease progression [Recovered/Resolved]
  - C-reactive protein increased [Recovered/Resolved]
  - Product use in unapproved indication [Recovered/Resolved]
